FAERS Safety Report 6029247-8 (Version None)
Quarter: 2009Q1

REPORT INFORMATION
  Report Type: 
  Country: None (occurrence: None)
  Receive Date: 20090106
  Receipt Date: 20081217
  Transmission Date: 20090719
  Serious: No
  Sender: FDA-Public Use
  Company Number: US-B.I. PHARMACEUTICALS,INC./RIDGEFIELD-2008-BP-18862BP

PATIENT
  Sex: Male

DRUGS (6)
  1. MICARDIS HCT [Suspect]
  2. PLAVIX [Concomitant]
  3. NORVASC [Concomitant]
  4. LIPITOR [Concomitant]
  5. PROBENECID [Concomitant]
  6. NIACIN [Concomitant]

REACTIONS (1)
  - PARAESTHESIA [None]
